FAERS Safety Report 6671056-0 (Version None)
Quarter: 2010Q2

REPORT INFORMATION
  Report Type: 
  Country: None (occurrence: None)
  Receive Date: 20100407
  Receipt Date: 20100401
  Transmission Date: 20101027
  Serious: Yes (Hospitalization)
  Sender: FDA-Public Use
  Company Number: DE-ASTRAZENECA-2010SE14287

PATIENT
  Age: 43 Year
  Sex: Female

DRUGS (2)
  1. ATACAND HCT [Suspect]
     Dosage: 32/12.5
     Route: 048
  2. BISOPROLOL STADA [Concomitant]

REACTIONS (1)
  - CIRCULATORY COLLAPSE [None]
